FAERS Safety Report 6151022-4 (Version None)
Quarter: 2009Q2

REPORT INFORMATION
  Report Type: 
  Country: None (occurrence: None)
  Receive Date: 20090410
  Receipt Date: 20090302
  Transmission Date: 20091009
  Serious: No
  Sender: FDA-Public Use
  Company Number: A0770918A

PATIENT
  Age: 42 Year
  Sex: Female

DRUGS (3)
  1. TYKERB [Suspect]
     Indication: BREAST CANCER
     Dosage: 250MG SIX TIMES PER DAY
     Route: 048
     Dates: start: 20090220
  2. PAROXETINE HCL [Suspect]
     Indication: ANXIETY
     Dosage: 20MG PER DAY
     Route: 048
     Dates: start: 20090209
  3. CHEMOTHERAPY [Concomitant]

REACTIONS (1)
  - HEADACHE [None]
